FAERS Safety Report 23465213 (Version 1)
Quarter: 2024Q1

REPORT INFORMATION
  Report Type: Spontaneous
  Country: ES (occurrence: None)
  Receive Date: 20240201
  Receipt Date: 20240201
  Transmission Date: 20240410
  Serious: Yes (Other)
  Sender: FDA-Public Use
  Company Number: 2024A019039

PATIENT
  Age: 69 Year
  Sex: Male

DRUGS (10)
  1. EVUSHELD [Suspect]
     Active Substance: CILGAVIMAB\TIXAGEVIMAB
     Indication: COVID-19 prophylaxis
     Dosage: 150 MG OF TIXAGEVIMAB AND 150 MG CILGAVIMAB300.0MG ONCE/SINGLE ADMINISTRATION
     Route: 030
     Dates: start: 20220729, end: 20220729
  2. ASPIRIN [Concomitant]
     Active Substance: ASPIRIN
     Route: 048
  3. CALCIFEDIOL [Concomitant]
     Active Substance: CALCIFEDIOL
     Route: 048
  4. PANCRELIPASE [Concomitant]
     Active Substance: PANCRELIPASE
     Route: 048
  5. REPAGLINIDE [Concomitant]
     Active Substance: REPAGLINIDE
     Route: 048
  6. CYCLOSPORINE [Concomitant]
     Active Substance: CYCLOSPORINE
     Route: 048
  7. ROCALTROL [Concomitant]
     Active Substance: CALCITRIOL
     Dosage: 0.25UG UNKNOWN
  8. CINACALCET HYDROCHLORIDE [Concomitant]
     Active Substance: CINACALCET HYDROCHLORIDE
     Route: 048
  9. TELMISARTAN [Concomitant]
     Active Substance: TELMISARTAN
     Route: 048
  10. LANSOPRAZOLE [Concomitant]
     Active Substance: LANSOPRAZOLE
     Route: 048

REACTIONS (1)
  - Deep vein thrombosis [Recovered/Resolved]

NARRATIVE: CASE EVENT DATE: 20221029
